FAERS Safety Report 13194555 (Version 1)
Quarter: 2017Q1

REPORT INFORMATION
  Report Type: Spontaneous
  Country: US (occurrence: US)
  Receive Date: 20170207
  Receipt Date: 20170207
  Transmission Date: 20170428
  Serious: No
  Sender: FDA-Public Use
  Company Number: US-JAZZ-2016-US-004081

PATIENT
  Age: 54 Year
  Sex: Male

DRUGS (11)
  1. BACLOFEN. [Suspect]
     Active Substance: BACLOFEN
     Indication: SPINAL PAIN
     Dosage: UNK ?G, QH
     Route: 037
     Dates: end: 20160211
  2. BACLOFEN. [Suspect]
     Active Substance: BACLOFEN
     Dosage: 2.95 ?G, QH
     Route: 037
     Dates: start: 20160211
  3. CLONIDINE. [Suspect]
     Active Substance: CLONIDINE
     Indication: SPINAL PAIN
     Dosage: UNK ?G, QH
     Route: 037
     Dates: end: 20160211
  4. PRIALT [Suspect]
     Active Substance: ZICONOTIDE ACETATE
     Dosage: 0.094 ?G, QH
     Route: 037
     Dates: start: 20160211
  5. BUPIVACAINE. [Suspect]
     Active Substance: BUPIVACAINE
     Dosage: 0.708 MG, QH
     Route: 037
     Dates: start: 20160211
  6. MARCAINE [Suspect]
     Active Substance: BUPIVACAINE HYDROCHLORIDE
  7. BUPIVACAINE. [Suspect]
     Active Substance: BUPIVACAINE
     Indication: SPINAL PAIN
     Dosage: UNK MG, QH
     Route: 037
     Dates: end: 20160211
  8. DILAUDID [Suspect]
     Active Substance: HYDROMORPHONE HYDROCHLORIDE
     Indication: SPINAL PAIN
     Dosage: UNK MG, QH
     Route: 037
     Dates: end: 20160211
  9. DILAUDID [Suspect]
     Active Substance: HYDROMORPHONE HYDROCHLORIDE
     Dosage: 0.142 MG, QH
     Route: 037
     Dates: end: 20160211
  10. PRIALT [Suspect]
     Active Substance: ZICONOTIDE ACETATE
     Indication: SPINAL PAIN
     Dosage: UNK ?G, QH
     Route: 037
     Dates: start: 2006, end: 20160211
  11. CLONIDINE. [Suspect]
     Active Substance: CLONIDINE
     Dosage: 7.075 ?G, QH
     Route: 037
     Dates: start: 20160211

REACTIONS (4)
  - Panic attack [Recovered/Resolved]
  - Withdrawal syndrome [Recovered/Resolved]
  - Device issue [Recovered/Resolved]
  - Pain [Recovered/Resolved]

NARRATIVE: CASE EVENT DATE: 20160229
